FAERS Safety Report 25776470 (Version 1)
Quarter: 2025Q3

REPORT INFORMATION
  Report Type: Spontaneous
  Country: US (occurrence: US)
  Receive Date: 20250909
  Receipt Date: 20250909
  Transmission Date: 20251021
  Serious: No
  Sender: DOMPE FARMACEUTICI
  Company Number: US-FARMAPROD-202503-0704

PATIENT
  Sex: Female

DRUGS (7)
  1. OXERVATE [Suspect]
     Active Substance: CENEGERMIN-BKBJ
     Indication: Neurotrophic keratopathy
     Route: 047
     Dates: start: 20250123
  2. COLLAGEN [Concomitant]
     Active Substance: COLLAGEN
  3. OMEGA-3 FATTY ACIDS [Concomitant]
     Active Substance: OMEGA-3 FATTY ACIDS
  4. SYEDA [Concomitant]
     Active Substance: DROSPIRENONE\ETHINYL ESTRADIOL
  5. TYRVAYA [Concomitant]
     Active Substance: VARENICLINE TARTRATE
  6. CEQUA [Concomitant]
     Active Substance: CYCLOSPORINE
  7. MIEBO [Concomitant]
     Active Substance: PERFLUOROHEXYLOCTANE

REACTIONS (1)
  - Eye pain [Unknown]
